FAERS Safety Report 4270777-7 (Version None)
Quarter: 2004Q1

REPORT INFORMATION
  Report Type: 
  Country: None (occurrence: None)
  Receive Date: 20040113
  Receipt Date: 20031230
  Transmission Date: 20041129
  Serious: Yes (Hospitalization)
  Sender: FDA-Public Use
  Company Number: US-JNJFOC-20040100308

PATIENT
  Age: 71 Year
  Sex: Female

DRUGS (7)
  1. INFLIXIMAB (INFLIXIMAB, RECOMBINANT) LYOPHILIZED POWDER [Suspect]
     Indication: RHEUMATOID ARTHRITIS
     Dosage: INTRAVENOUS
     Route: 042
     Dates: start: 20010807
  2. METHOTREXATE [Concomitant]
  3. FOLIC ACID [Concomitant]
  4. NITROGLYCERIN [Concomitant]
  5. PAXIL [Concomitant]
  6. TYLENOL [Concomitant]
  7. ZOCOR [Concomitant]

REACTIONS (3)
  - CARDIOMEGALY [None]
  - PNEUMONIA MYCOPLASMAL [None]
  - SUPRAVENTRICULAR TACHYCARDIA [None]
